FAERS Safety Report 8699307 (Version 2)
Quarter: 2012Q4

REPORT INFORMATION
  Report Type: 
  Country: BE (occurrence: BE)
  Receive Date: 20120802
  Receipt Date: 20121030
  Transmission Date: 20130627
  Serious: Yes (Hospitalization, Other)
  Sender: FDA-Public Use
  Company Number: BE-BRISTOL-MYERS SQUIBB COMPANY-16654121

PATIENT
  Age: 45 Year
  Sex: Female

DRUGS (5)
  1. SPRYCEL [Suspect]
     Indication: ACUTE LYMPHOCYTIC LEUKAEMIA
     Dosage: Approx. 15 days ago
100mg:3dec11-08Dec11
140mg:9Dec11-19Jan12
100mg:23Jan-8Feb12
70mg:9-18Feb12
     Dates: start: 20111203, end: 20120218
  2. OMEPRAZOLE [Suspect]
     Indication: HYPERCHLORHYDRIA
     Dates: start: 201111, end: 20120222
  3. ALPRAZOLAM [Suspect]
     Indication: ANXIOLYTIC THERAPY
     Dates: start: 20111202, end: 20120222
  4. CLARITHROMYCIN [Suspect]
     Indication: INFECTION
     Dates: start: 20110218, end: 20120222
  5. VORICONAZOLE [Suspect]
     Indication: FUNGAL INFECTION
     Dates: start: 20111205, end: 20120221

REACTIONS (4)
  - Pleural effusion [Recovered/Resolved]
  - Pericardial effusion [Recovered/Resolved]
  - Malignant neoplasm progression [Unknown]
  - Pleural fibrosis [Not Recovered/Not Resolved]
